FAERS Safety Report 22247462 (Version 2)
Quarter: 2023Q2

REPORT INFORMATION
  Report Type: Spontaneous
  Country: BR (occurrence: BR)
  Receive Date: 20230425
  Receipt Date: 20230428
  Transmission Date: 20230721
  Serious: Yes (Death, Hospitalization, Other)
  Sender: FDA-Public Use
  Company Number: BR-002147023-NVSC2023BR092931

PATIENT
  Sex: Female

DRUGS (4)
  1. EXELON [Suspect]
     Active Substance: RIVASTIGMINE TARTRATE
     Indication: Dementia Alzheimer^s type
     Dosage: 3 MG, QD (STRENGTH: 3 MG)
     Route: 048
     Dates: start: 2014, end: 2018
  2. EXELON [Suspect]
     Active Substance: RIVASTIGMINE TARTRATE
     Dosage: 4.5 MG, BID (FOR TWO YEARS) (STRENGTH: 4.5 MG) (DATE OF MANUFACTURE: AUG 2021)
     Route: 048
     Dates: start: 2018
  3. BENSERAZIDE\LEVODOPA [Concomitant]
     Active Substance: BENSERAZIDE\LEVODOPA
     Indication: Parkinson^s disease
     Dosage: UNK
     Route: 065
  4. OLMESARTAN MEDOXOMIL [Concomitant]
     Active Substance: OLMESARTAN MEDOXOMIL
     Indication: Blood pressure measurement
     Dosage: UNK
     Route: 065

REACTIONS (10)
  - Gastrointestinal disorder [Fatal]
  - Parkinson^s disease [Not Recovered/Not Resolved]
  - Blindness [Unknown]
  - Eating disorder [Unknown]
  - Discharge [Unknown]
  - Weight decreased [Unknown]
  - Disease progression [Unknown]
  - Fluid retention [Unknown]
  - Off label use [Unknown]
  - Off label use [Unknown]

NARRATIVE: CASE EVENT DATE: 20140101
